FAERS Safety Report 4405361-5 (Version None)
Quarter: 2004Q3

REPORT INFORMATION
  Report Type: 
  Country: None (occurrence: None)
  Receive Date: 20040720
  Receipt Date: 20040702
  Transmission Date: 20050211
  Serious: Yes (Other)
  Sender: FDA-Public Use
  Company Number: DSA_24634_2004

PATIENT
  Age: 22 Year
  Sex: Male

DRUGS (12)
  1. ENALAPRIL MALEATE [Suspect]
     Indication: HYPERTENSION
     Dosage: 10 MG QD PO
     Route: 048
     Dates: start: 20040401, end: 20040601
  2. TRIATEC [Suspect]
     Indication: HYPERTENSION
     Dosage: 10 MG QD PO
     Route: 048
     Dates: start: 20040401, end: 20040601
  3. RECORMON [Concomitant]
  4. TENORMIN [Concomitant]
  5. APROVEL [Concomitant]
  6. TOREM /GFR/ [Concomitant]
  7. NORVASC [Concomitant]
  8. OMEPRAZOLE [Concomitant]
  9. CALCIUM ACETATE [Concomitant]
  10. RENAGEL [Concomitant]
  11. SODIUM POLYSTYRENE SULFONATE [Concomitant]
  12. EUTHYROX [Concomitant]

REACTIONS (1)
  - NORMOCHROMIC NORMOCYTIC ANAEMIA [None]
